FAERS Safety Report 6394070-1 (Version None)
Quarter: 2009Q4

REPORT INFORMATION
  Report Type: 
  Country: None (occurrence: None)
  Receive Date: 20091008
  Receipt Date: 20090914
  Transmission Date: 20100525
  Serious: Yes (Hospitalization)
  Sender: FDA-Public Use
  Company Number: PE-PFIZER INC-2009255640

PATIENT
  Age: 81 Year

DRUGS (4)
  1. CYCLOPHOSPHAMIDE [Suspect]
     Indication: BREAST CANCER
     Dosage: 920 MG, CYCLIC
     Route: 042
     Dates: start: 20090511, end: 20090701
  2. DOXORUBICIN HCL [Suspect]
     Indication: BREAST CANCER
     Dosage: 92 MG, CYCLIC
     Route: 042
     Dates: start: 20090511, end: 20090701
  3. ONDANSETRON [Concomitant]
     Indication: PROPHYLAXIS
     Dosage: UNK
     Dates: start: 20090701, end: 20090701
  4. DEXAMETHASONE [Concomitant]
     Indication: PROPHYLAXIS
     Dosage: UNK
     Dates: start: 20090701, end: 20090701

REACTIONS (7)
  - BLOOD CREATININE INCREASED [None]
  - BLOOD GLUCOSE INCREASED [None]
  - BLOOD POTASSIUM DECREASED [None]
  - BLOOD SODIUM INCREASED [None]
  - HYPOTENSION [None]
  - MUSCULAR WEAKNESS [None]
  - NEUTROPENIA [None]
